FAERS Safety Report 17126487 (Version 1)
Quarter: 2019Q4

REPORT INFORMATION
  Report Type: Spontaneous
  Country: US (occurrence: US)
  Receive Date: 20191209
  Receipt Date: 20191209
  Transmission Date: 20200122
  Serious: No
  Sender: FDA-Public Use
  Company Number: US-UCBSA-2017011976

PATIENT
  Sex: Female
  Weight: 99.51 kg

DRUGS (8)
  1. KEPPRA [Suspect]
     Active Substance: LEVETIRACETAM
     Dosage: INCREASED DOSE
  2. DIASTAT [Concomitant]
     Active Substance: DIAZEPAM
     Indication: SEIZURE
     Dosage: UNK, AS NEEDED (PRN)
  3. KEPPRA [Suspect]
     Active Substance: LEVETIRACETAM
     Indication: SEIZURE
     Dosage: UNKNOWN DOSE
  4. KEPPRA [Suspect]
     Active Substance: LEVETIRACETAM
     Dosage: 1000 MG, 2X/DAY (BID)
  5. KEPPRA [Suspect]
     Active Substance: LEVETIRACETAM
     Dosage: FURTHER INCREASED DOSE
  6. KEPPRA [Suspect]
     Active Substance: LEVETIRACETAM
     Dosage: ADJUSTED DOSE
  7. ZYRTEC [Concomitant]
     Active Substance: CETIRIZINE HYDROCHLORIDE
     Indication: PRODUCT USED FOR UNKNOWN INDICATION
     Dosage: 10 MG, ONCE DAILY (QD)
  8. KEPPRA [Suspect]
     Active Substance: LEVETIRACETAM
     Dosage: 1000 MG IN AM/1500 MG IN PM

REACTIONS (10)
  - Somnolence [Recovered/Resolved]
  - Dizziness [Recovered/Resolved]
  - Seizure [Unknown]
  - Restlessness [Unknown]
  - Myoclonus [Unknown]
  - Stress [Unknown]
  - Fatigue [Recovered/Resolved]
  - Headache [Recovered/Resolved]
  - Poor quality sleep [Unknown]
  - Generalised tonic-clonic seizure [Unknown]
